FAERS Safety Report 5924616-6 (Version None)
Quarter: 2008Q3

REPORT INFORMATION
  Report Type: 
  Country: None (occurrence: None)
  Receive Date: 20080909
  Receipt Date: 20080225
  Transmission Date: 20090109
  Serious: Yes (Death)
  Sender: FDA-Public Use
  Company Number: 163-20785-08021474

PATIENT
  Sex: Male

DRUGS (2)
  1. THALOMID [Suspect]
     Indication: MULTIPLE MYELOMA
     Dosage: 100-200MG, DAILY, ORAL ; 50-100MG, DAILY, ORAL
     Route: 048
     Dates: start: 20070130, end: 20070401
  2. THALOMID [Suspect]
     Indication: MULTIPLE MYELOMA
     Dosage: 100-200MG, DAILY, ORAL ; 50-100MG, DAILY, ORAL
     Route: 048
     Dates: start: 20070801

REACTIONS (1)
  - DEATH [None]
